FAERS Safety Report 8048842-8 (Version None)
Quarter: 2011Q4

REPORT INFORMATION
  Report Type: 
  Country: None (occurrence: None)
  Receive Date: 20111209
  Receipt Date: 20110824
  Transmission Date: 20120403
  Serious: No
  Sender: FDA-Public Use
  Company Number: 2011SP040111

PATIENT
  Age: 48 Year
  Sex: Female

DRUGS (5)
  1. RIBAVIRIN [Suspect]
     Indication: PRODUCT USED FOR UNKNOWN INDICATION
  2. PEGASYS [Suspect]
     Indication: PRODUCT USED FOR UNKNOWN INDICATION
  3. TOPROL-XL [Concomitant]
  4. VICTRELIS [Suspect]
     Indication: HEPATITIS C
     Dosage: 4 DF; PO
     Route: 048
     Dates: start: 20110817, end: 20110823
  5. LEVOTHYROXINE SODIUM [Concomitant]

REACTIONS (1)
  - POOR QUALITY SLEEP [None]
